FAERS Safety Report 21041495 (Version 1)
Quarter: 2022Q3

REPORT INFORMATION
  Report Type: Report from Study
  Country: PL (occurrence: None)
  Receive Date: 20220705
  Receipt Date: 20220705
  Transmission Date: 20221026
  Serious: Yes (Hospitalization)
  Sender: FDA-Public Use
  Company Number: PL-ROCHE-3128296

PATIENT
  Age: 78 Year
  Sex: Male
  Weight: 52 kg

DRUGS (5)
  1. RITUXIMAB [Suspect]
     Active Substance: RITUXIMAB
     Indication: Neoplasm malignant
     Dosage: 570 MG
     Route: 041
     Dates: start: 20220428
  2. BENDAMUSTINE [Suspect]
     Active Substance: BENDAMUSTINE
     Indication: Neoplasm malignant
     Route: 042
     Dates: start: 20220428, end: 20220428
  3. BENDAMUSTINE [Suspect]
     Active Substance: BENDAMUSTINE
     Route: 042
     Dates: start: 20220429
  4. EZEHRON [Concomitant]
     Route: 065
     Dates: start: 2021
  5. EGIRAMLON [Concomitant]
     Route: 065
     Dates: start: 2021

REACTIONS (1)
  - Tumour lysis syndrome [Recovered/Resolved]

NARRATIVE: CASE EVENT DATE: 20220430
